FAERS Safety Report 8180485-8 (Version None)
Quarter: 2012Q1

REPORT INFORMATION
  Report Type: 
  Country: None (occurrence: None)
  Receive Date: 20120302
  Receipt Date: 20120217
  Transmission Date: 20120608
  Serious: Yes (Other)
  Sender: FDA-Public Use
  Company Number: US-ENDO PHARMACEUTICALS INC.-OPER20120128

PATIENT
  Sex: Male

DRUGS (1)
  1. OPANA ER [Suspect]
     Indication: DRUG ABUSE
     Dosage: N/A

REACTIONS (5)
  - DRUG ABUSE [None]
  - WRONG TECHNIQUE IN DRUG USAGE PROCESS [None]
  - SILICOSIS [None]
  - CRYING [None]
  - DRUG DEPENDENCE [None]
